FAERS Safety Report 13005879 (Version 1)
Quarter: 2016Q4

REPORT INFORMATION
  Report Type: Other
  Country: US (occurrence: US)
  Receive Date: 20161207
  Receipt Date: 20161207
  Transmission Date: 20170207
  Serious: Yes (Death, Life-Threatening, Other)
  Sender: FDA-Public Use
  Company Number: US-SEPTODONT-201503755

PATIENT
  Age: 8 Year
  Sex: Female
  Weight: 22.6 kg

DRUGS (4)
  1. NITROUS OXIDE-OXYGEN [Concomitant]
     Route: 055
  2. TRIMEPERIDINE HYDROCHLORIDE [Concomitant]
     Route: 030
  3. MEPIVACAINE [Suspect]
     Active Substance: MEPIVACAINE\MEPIVACAINE HYDROCHLORIDE
     Indication: LOCAL ANAESTHESIA
     Route: 004
  4. PROMETHAZINE [Concomitant]
     Active Substance: PROMETHAZINE\PROMETHAZINE HYDROCHLORIDE
     Route: 048

REACTIONS (4)
  - Respiratory distress [Not Recovered/Not Resolved]
  - Hypoxic-ischaemic encephalopathy [Fatal]
  - Overdose [Not Recovered/Not Resolved]
  - Seizure [Not Recovered/Not Resolved]
